FAERS Safety Report 10520699 (Version 4)
Quarter: 2015Q2

REPORT INFORMATION
  Report Type: Report from Study
  Country: US (occurrence: US)
  Receive Date: 20141015
  Receipt Date: 20150619
  Transmission Date: 20150821
  Serious: Yes (Congenital Anomaly)
  Sender: FDA-Public Use
  Company Number: US-ABBVIE-14P-163-1293241-00

PATIENT
  Sex: Female

DRUGS (7)
  1. TRUVADA [Suspect]
     Active Substance: EMTRICITABINE\TENOFOVIR DISOPROXIL FUMARATE
     Indication: MATERNAL EXPOSURE TIMING UNSPECIFIED
     Route: 064
  2. KALETRA [Suspect]
     Active Substance: LOPINAVIR\RITONAVIR
     Indication: MATERNAL EXPOSURE TIMING UNSPECIFIED
     Route: 064
  3. METRONIDAZOLE VAGINAL [Suspect]
     Active Substance: METRONIDAZOLE
     Indication: MATERNAL EXPOSURE TIMING UNSPECIFIED
     Route: 064
  4. FIORICET [Suspect]
     Active Substance: ACETAMINOPHEN\BUTALBITAL\CAFFEINE
     Indication: MATERNAL EXPOSURE TIMING UNSPECIFIED
     Route: 064
  5. FERROUS SULFATE [Suspect]
     Active Substance: FERROUS SULFATE\FERROUS SULFATE, DRIED
     Indication: MATERNAL EXPOSURE TIMING UNSPECIFIED
     Route: 064
  6. SULFAMETHOXAZOLE AND TRIMETHOPRIM [Suspect]
     Active Substance: SULFAMETHOXAZOLE\TRIMETHOPRIM
     Indication: MATERNAL EXPOSURE TIMING UNSPECIFIED
     Route: 064
  7. TERCONAZOLE. [Suspect]
     Active Substance: TERCONAZOLE
     Indication: MATERNAL EXPOSURE TIMING UNSPECIFIED
     Route: 064

REACTIONS (6)
  - Low birth weight baby [Unknown]
  - Inborn error of metabolism [Unknown]
  - Carnitine deficiency [Unknown]
  - Foetal exposure during pregnancy [Unknown]
  - Dysmorphism [Unknown]
  - Hypotonia neonatal [Unknown]
